FAERS Safety Report 18298603 (Version 1)
Quarter: 2020Q3

REPORT INFORMATION
  Report Type: Report from Study
  Country: CA (occurrence: CA)
  Receive Date: 20200922
  Receipt Date: 20200922
  Transmission Date: 20201103
  Serious: Yes (Other)
  Sender: FDA-Public Use
  Company Number: CA-JNJFOC-20191114978

PATIENT
  Age: 35 Year
  Sex: Female
  Weight: 55.2 kg

DRUGS (1)
  1. REMICADE [Suspect]
     Active Substance: INFLIXIMAB
     Indication: CROHN^S DISEASE
     Dosage: 17.5 (MG/KG
     Route: 042
     Dates: start: 20090912

REACTIONS (4)
  - Clostridium difficile infection [Recovering/Resolving]
  - Exposure during pregnancy [Recovered/Resolved]
  - Vomiting [Recovering/Resolving]
  - Sinusitis [Unknown]

NARRATIVE: CASE EVENT DATE: 2019
